FAERS Safety Report 8315700-0 (Version None)
Quarter: 2012Q2

REPORT INFORMATION
  Report Type: 
  Country: None (occurrence: None)
  Receive Date: 20120426
  Receipt Date: 20120424
  Transmission Date: 20120825
  Serious: Yes (Life-Threatening, Hospitalization, Other)
  Sender: FDA-Public Use
  Company Number: PHHY2012PL035130

PATIENT
  Sex: Female
  Weight: 60 kg

DRUGS (3)
  1. METHOTREXATE [Suspect]
     Indication: RHEUMATOID ARTHRITIS
     Dosage: 20 MG, QW
     Route: 048
     Dates: start: 20100101
  2. METHYLPREDNISOLONE [Concomitant]
     Dosage: 6 MG, QD
     Route: 048
     Dates: start: 20100101
  3. HUMIRA [Suspect]
     Indication: RHEUMATOID ARTHRITIS
     Dosage: 40 MG, QW2
     Route: 058
     Dates: start: 20101105, end: 20110506

REACTIONS (3)
  - DIVERTICULUM INTESTINAL [None]
  - PNEUMONIA PRIMARY ATYPICAL [None]
  - CYTOMEGALOVIRUS INFECTION [None]
